FAERS Safety Report 4980532-8 (Version None)
Quarter: 2006Q2

REPORT INFORMATION
  Report Type: 
  Country: None (occurrence: None)
  Receive Date: 20060424
  Receipt Date: 20060411
  Transmission Date: 20061013
  Serious: Yes (Hospitalization)
  Sender: FDA-Public Use
  Company Number: JP-AVENTIS-200611196JP

PATIENT
  Age: 77 Year
  Sex: Female

DRUGS (2)
  1. DAONIL [Suspect]
     Indication: DIABETES MELLITUS
     Route: 048
  2. BASEN [Suspect]
     Indication: DIABETES MELLITUS

REACTIONS (1)
  - HYPOGLYCAEMIC ENCEPHALOPATHY [None]
